FAERS Safety Report 23955864 (Version 2)
Quarter: 2024Q2

REPORT INFORMATION
  Report Type: Other
  Country: US (occurrence: None)
  Receive Date: 20240610
  Receipt Date: 20240611
  Transmission Date: 20240716
  Serious: Yes (Hospitalization, Other)
  Sender: FDA-Public Use
  Company Number: US-ROCHE-3572146

PATIENT
  Age: 67 Year
  Sex: Female
  Weight: 74.91 kg

DRUGS (2)
  1. OCREVUS [Suspect]
     Active Substance: OCRELIZUMAB
     Indication: Relapsing-remitting multiple sclerosis
     Route: 042
     Dates: start: 2020
  2. OCREVUS [Suspect]
     Active Substance: OCRELIZUMAB
     Route: 042
     Dates: start: 20230410, end: 20240410

REACTIONS (13)
  - Pulmonary sepsis [Recovered/Resolved]
  - Upper limb fracture [Recovering/Resolving]
  - Joint injury [Unknown]
  - Urinary incontinence [Recovered/Resolved]
  - Anal incontinence [Recovered/Resolved]
  - Hypersomnia [Not Recovered/Not Resolved]
  - Vertigo [Recovered/Resolved]
  - Fall [Unknown]
  - Asthenia [Not Recovered/Not Resolved]
  - Memory impairment [Not Recovered/Not Resolved]
  - Insomnia [Recovered/Resolved]
  - Fatigue [Not Recovered/Not Resolved]
  - Illness [Unknown]

NARRATIVE: CASE EVENT DATE: 20200101
